FAERS Safety Report 4981367-2 (Version None)
Quarter: 2006Q2

REPORT INFORMATION
  Report Type: 
  Country: None (occurrence: None)
  Receive Date: 20060424
  Receipt Date: 20050706
  Transmission Date: 20061013
  Serious: Yes (Hospitalization, Other)
  Sender: FDA-Public Use
  Company Number: US-MERCK-0507USA00932

PATIENT
  Sex: Female
  Weight: 68 kg

DRUGS (1)
  1. VIOXX [Suspect]
     Route: 048

REACTIONS (5)
  - ARTERIOSCLEROSIS [None]
  - CONVULSION [None]
  - DIABETES MELLITUS [None]
  - INJURY [None]
  - ROAD TRAFFIC ACCIDENT [None]
